FAERS Safety Report 5147374-4 (Version None)
Quarter: 2006Q4

REPORT INFORMATION
  Report Type: 
  Country: None (occurrence: None)
  Receive Date: 20061103
  Receipt Date: 20061023
  Transmission Date: 20070319
  Serious: Yes (Hospitalization, Other)
  Sender: FDA-Public Use
  Company Number: 2006056338

PATIENT
  Age: 42 Year
  Sex: Male
  Weight: 87.5442 kg

DRUGS (1)
  1. BEXTRA [Suspect]
     Indication: BACK PAIN
     Dosage: (20 MG)

REACTIONS (6)
  - ANXIETY [None]
  - ARTERIAL OCCLUSIVE DISEASE [None]
  - ARTERIOSCLEROSIS [None]
  - CARDIAC DISORDER [None]
  - INJURY [None]
  - NON-CARDIAC CHEST PAIN [None]
